FAERS Safety Report 9913063 (Version 1)
Quarter: 2014Q1

REPORT INFORMATION
  Report Type: Spontaneous
  Country: CH (occurrence: None)
  Receive Date: 20140212
  Receipt Date: 20140212
  Transmission Date: 20141002
  Serious: Yes (Hospitalization)
  Sender: FDA-Public Use
  Company Number: 2014027812

PATIENT
  Age: 61 Year
  Sex: Female

DRUGS (13)
  1. FRAGMIN [Suspect]
     Indication: PROPHYLAXIS
     Route: 058
     Dates: start: 20131230
  2. BRILIQUE [Suspect]
     Indication: ACUTE MYOCARDIAL INFARCTION
     Dosage: 1 DF 1X DAY ORAL
     Route: 048
     Dates: start: 20140103, end: 201401
  3. ASPIRIN [Suspect]
     Indication: ACUTE MYOCARDIAL INFARCTION
     Dosage: 1 DF 1X//DAYY, ORAL
     Route: 048
     Dates: start: 20140103
  4. CIPRALEX [Suspect]
     Indication: ANXIETY DISORDER
     Route: 048
     Dates: start: 20140103
  5. VENTOLIN(SLBUTAMOL) [Concomitant]
  6. SPIRIVIA(TIOTROPIUM BROMIDE) [Concomitant]
  7. LYRICA(PREGABALIN) [Concomitant]
  8. TRUXAL(CHLORPROTHIXENE HYDROCHLORIDE) [Concomitant]
  9. AMARYL(GLIMEPIRIDE) [Concomitant]
  10. TAZOBAC(PIPERACILLIN SODIUM, TAZOBACTAM SODIUM) [Concomitant]
  11. TAMIFLU(OSELTAMIVIR) [Concomitant]
  12. SORTIS(ATORVASTATIN) [Concomitant]
  13. SERETIDE(FLUTICASONE PROPIONATE, SALMETEROL XINAFOATE) [Concomitant]

REACTIONS (9)
  - Drug interaction [None]
  - Application site haemorrhage [None]
  - Haemoglobin decreased [None]
  - Blood pressure decreased [None]
  - Acute myocardial infarction [None]
  - Injection site pain [None]
  - Sepsis [None]
  - Pneumonia [None]
  - Chronic obstructive pulmonary disease [None]
